FAERS Safety Report 18598853 (Version 1)
Quarter: 2020Q4

REPORT INFORMATION
  Report Type: Spontaneous
  Country: JP (occurrence: JP)
  Receive Date: 20201210
  Receipt Date: 20201210
  Transmission Date: 20210114
  Serious: Yes (Death, Other)
  Sender: FDA-Public Use
  Company Number: JP-ASTELLAS-2020US043387

PATIENT
  Age: 95 Year
  Sex: Female

DRUGS (1)
  1. AMPHOTERICIN B, LIPOSOME [Suspect]
     Active Substance: AMPHOTERICIN B
     Indication: FUNGAL INFECTION
     Dosage: 100 MG, ONCE DAILY (QD), LESS THAN 14 DAYS
     Route: 041

REACTIONS (1)
  - Multiple organ dysfunction syndrome [Fatal]
